FAERS Safety Report 4583693-8 (Version None)
Quarter: 2005Q1

REPORT INFORMATION
  Report Type: 
  Country: None (occurrence: None)
  Receive Date: 20050216
  Receipt Date: 20050105
  Transmission Date: 20050727
  Serious: Yes (Hospitalization)
  Sender: FDA-Public Use
  Company Number: FR-BRISTOL-MYERS SQUIBB COMPANY-12820775

PATIENT
  Age: 63 Year
  Sex: Male

DRUGS (9)
  1. ENDOXAN [Suspect]
     Indication: LYMPHOMA
     Route: 042
     Dates: start: 20040612, end: 20040927
  2. DOXORUBICIN HCL [Suspect]
     Indication: LYMPHOMA
     Dates: start: 20040612, end: 20040927
  3. MABTHERA [Suspect]
     Indication: LYMPHOMA
     Dosage: INTERRUPTED FROM 27-SEP TO 27-OCT-2004
     Route: 042
     Dates: start: 20040612, end: 20040927
  4. ONCOVIN [Suspect]
     Indication: LYMPHOMA
     Route: 042
     Dates: start: 20040612, end: 20040927
  5. GEMZAR [Suspect]
     Route: 042
     Dates: start: 20041027, end: 20041027
  6. ELOXATIN [Suspect]
     Dates: start: 20041027, end: 20041027
  7. PREDNISONE [Concomitant]
     Dates: start: 20040612, end: 20040927
  8. NEUPOGEN [Concomitant]
     Dates: start: 20040612, end: 20040927
  9. LENOGRASTIM [Concomitant]
     Dates: start: 20040612, end: 20040927

REACTIONS (2)
  - BRONCHIOLITIS [None]
  - OBSTRUCTIVE AIRWAYS DISORDER [None]
